FAERS Safety Report 6925813-3 (Version None)
Quarter: 2010Q3

REPORT INFORMATION
  Report Type: 
  Country: None (occurrence: None)
  Receive Date: 20100813
  Receipt Date: 20100813
  Transmission Date: 20110219
  Serious: No
  Sender: FDA-Public Use
  Company Number: None

PATIENT
  Sex: Male
  Weight: 64.9 kg

DRUGS (3)
  1. METHOTREXATE [Suspect]
  2. ONCASPAR [Suspect]
     Dosage: 6750 MG
  3. VINCRISTINE SULFATE [Suspect]
     Dosage: 10 MG

REACTIONS (3)
  - BLOOD CHOLESTEROL INCREASED [None]
  - BLOOD TRIGLYCERIDES INCREASED [None]
  - NEUTROPHIL COUNT ABNORMAL [None]
